FAERS Safety Report 19063875 (Version 1)
Quarter: 2021Q1

REPORT INFORMATION
  Report Type: Spontaneous
  Country: DE (occurrence: DE)
  Receive Date: 20210326
  Receipt Date: 20210326
  Transmission Date: 20210420
  Serious: Yes (Hospitalization)
  Sender: FDA-Public Use
  Company Number: DE-TEVA-2021-DE-1893958

PATIENT
  Age: 68 Year
  Sex: Male

DRUGS (9)
  1. PROPRANOLOL [Concomitant]
     Active Substance: PROPRANOLOL HYDROCHLORIDE
     Dosage: 15 MILLIGRAM DAILY; 1?1?1?0
  2. PANTOPRAZOL [Concomitant]
     Active Substance: PANTOPRAZOLE SODIUM
     Dosage: 40 MILLIGRAM DAILY; 1?0?0?0
  3. METFORMIN [Concomitant]
     Active Substance: METFORMIN HYDROCHLORIDE
     Dosage: 1 DOSAGE FORMS DAILY; 0.5?0?0.5?0
  4. SITAGLIPTIN [Concomitant]
     Active Substance: SITAGLIPTIN
     Dosage: 100 MILLIGRAM DAILY; 1?0?1?0
  5. FOLSAEURE [Concomitant]
     Active Substance: FOLIC ACID
     Dosage: 5 MILLIGRAM DAILY; 1?0?0?0
  6. TILIDINE/NALOXONE [Concomitant]
     Active Substance: NALOXONE HYDROCHLORIDE\TILIDINE HYDROCHLORIDE
     Dosage: 2 DOSAGE FORMS DAILY; 4|50 MG, 1?1?0?0
  7. PHENPROCOUMON [Suspect]
     Active Substance: PHENPROCOUMON
     Dosage: 3 MG, ACCORDING TO THE SCHEME
  8. TORASEMID [Suspect]
     Active Substance: TORSEMIDE
     Dosage: 5 MG, 1?0.5?0?0
  9. EISEN II [Concomitant]
     Active Substance: FERROUS SULFATE
     Dosage: 100 MILLIGRAM DAILY; 1?0?0?0

REACTIONS (5)
  - Dyspnoea exertional [Unknown]
  - Anaemia [Unknown]
  - Pallor [Unknown]
  - Weight bearing difficulty [Unknown]
  - General physical health deterioration [Unknown]
